FAERS Safety Report 11393287 (Version 2)
Quarter: 2016Q1

REPORT INFORMATION
  Report Type: Report from Study
  Country: BR (occurrence: BR)
  Receive Date: 20150818
  Receipt Date: 20160223
  Transmission Date: 20160525
  Serious: No
  Sender: FDA-Public Use
  Company Number: PHHY2015BR099987

PATIENT
  Sex: Female
  Weight: 25 kg

DRUGS (1)
  1. EXJADE [Suspect]
     Active Substance: DEFERASIROX
     Indication: SPHEROCYTIC ANAEMIA
     Dosage: 30 MG/KG, QD (3 TABLETS OF 250 MG/DAY)
     Route: 065
     Dates: start: 201404

REACTIONS (2)
  - Device occlusion [Unknown]
  - Product use issue [Unknown]
